FAERS Safety Report 5693681-6 (Version None)
Quarter: 2008Q2

REPORT INFORMATION
  Report Type: 
  Country: None (occurrence: None)
  Receive Date: 20080403
  Receipt Date: 20080331
  Transmission Date: 20081010
  Serious: Yes (Death, Life-Threatening, Hospitalization)
  Sender: FDA-Public Use
  Company Number: FR-ASTRAZENECA-2008CG00483

PATIENT
  Age: 32020 Day
  Sex: Female

DRUGS (13)
  1. OMEPRAZOLE [Suspect]
     Route: 048
  2. PLAVIX [Suspect]
     Route: 048
     Dates: start: 20071231, end: 20080111
  3. KARDEGIC [Suspect]
     Route: 048
     Dates: start: 20080108, end: 20080111
  4. PREVISCAN [Suspect]
     Route: 048
     Dates: start: 20080108, end: 20080111
  5. ARIXTRA [Suspect]
     Route: 058
     Dates: start: 20080108, end: 20080110
  6. EFFEXOR [Suspect]
     Route: 048
     Dates: end: 20080112
  7. AMLOR [Suspect]
     Route: 048
     Dates: end: 20080112
  8. KERLONE [Suspect]
     Route: 048
     Dates: end: 20080112
  9. SPIRONOLACTONE [Suspect]
     Route: 048
     Dates: end: 20080112
  10. TRINIPATCH [Suspect]
     Route: 062
     Dates: end: 20080112
  11. ATORVASTATIN CALCIUM [Suspect]
     Route: 048
  12. LASILIX [Concomitant]
  13. LOVENOX [Concomitant]
     Dates: start: 20080102, end: 20080107

REACTIONS (2)
  - ANAEMIA [None]
  - MUSCLE HAEMORRHAGE [None]
